FAERS Safety Report 25990839 (Version 1)
Quarter: 2025Q4

REPORT INFORMATION
  Report Type: Report from Study
  Country: US (occurrence: None)
  Receive Date: 20251103
  Receipt Date: 20251103
  Transmission Date: 20260118
  Serious: Yes (Death, Hospitalization, Other)
  Sender: UCB
  Company Number: US-UCBSA-2025051523

PATIENT

DRUGS (2)
  1. BRIVARACETAM [Suspect]
     Active Substance: BRIVARACETAM
     Indication: Seizure
     Dosage: 75 MILLIGRAM, 2X/DAY (BID)
  2. LEVETIRACETAM [Concomitant]
     Active Substance: LEVETIRACETAM
     Indication: Product used for unknown indication
     Dosage: 750 MILLIGRAM

REACTIONS (7)
  - Cerebrovascular accident [Fatal]
  - Fall [Unknown]
  - Hip fracture [Unknown]
  - Hip surgery [Unknown]
  - Seizure [Unknown]
  - Aspiration [Unknown]
  - Emotional distress [Unknown]
